FAERS Safety Report 11638744 (Version 3)
Quarter: 2015Q4

REPORT INFORMATION
  Report Type: Report from Study
  Country: GR (occurrence: GR)
  Receive Date: 20151016
  Receipt Date: 20151026
  Transmission Date: 20160304
  Serious: Yes (Death, Hospitalization)
  Sender: FDA-Public Use
  Company Number: GR-ABBVIE-15P-066-1480630-00

PATIENT
  Age: 84 Year
  Sex: Male

DRUGS (9)
  1. DUODOPA [Suspect]
     Active Substance: CARBIDOPA\LEVODOPA
     Dosage: MORNING DOSE: 7.2 ML;?CONTINUOUS RATE: 1.5 ML/H;?EXTRA DOSE: 1 ML
     Route: 050
  2. SINTROM [Concomitant]
     Active Substance: ACENOCOUMAROL
     Indication: PRODUCT USED FOR UNKNOWN INDICATION
     Route: 048
  3. APROVEL [Concomitant]
     Active Substance: IRBESARTAN
     Indication: PRODUCT USED FOR UNKNOWN INDICATION
     Route: 048
  4. DUODOPA [Suspect]
     Active Substance: CARBIDOPA\LEVODOPA
     Indication: PARKINSON^S DISEASE
     Dosage: MORNING DOSE: 7.2 ML;?CONTINUOUS RATE: 2.2 ML/H;?EXTRA DOSE: 1 ML
     Route: 050
     Dates: start: 20150806, end: 20151008
  5. DUODOPA [Suspect]
     Active Substance: CARBIDOPA\LEVODOPA
     Dosage: MORNING DOSE: 7.2 ML,CONTINUOUS RATE: 1.8 ML/H,EXTRA DOSE: 1 ML
     Route: 050
  6. IRBESARTAN AND HYDROCHLOROTHIAZIDE [Concomitant]
     Active Substance: HYDROCHLOROTHIAZIDE\IRBESARTAN
     Indication: PRODUCT USED FOR UNKNOWN INDICATION
     Route: 048
  7. NITRONG [Concomitant]
     Active Substance: NITROGLYCERIN
     Indication: PRODUCT USED FOR UNKNOWN INDICATION
     Route: 048
  8. DUODOPA [Suspect]
     Active Substance: CARBIDOPA\LEVODOPA
     Dosage: MORNING DOSE: 7.2 ML;?CONTINUOUS RATE: 2.2 ML/H;?EXTRA DOSE: 1 ML
     Route: 050
     Dates: start: 20151008
  9. DUODOPA [Suspect]
     Active Substance: CARBIDOPA\LEVODOPA
     Dosage: MD 7.2ML. CD 2.1ML/H, ED 1.2ML
     Route: 050

REACTIONS (9)
  - Dysphagia [Recovered/Resolved]
  - Pyrexia [Recovered/Resolved]
  - Gait disturbance [Not Recovered/Not Resolved]
  - Abdominal pain upper [Recovered/Resolved]
  - Generalised oedema [Fatal]
  - Cardiac arrest [Fatal]
  - Pneumonia aspiration [Recovered/Resolved]
  - Urinary tract infection [Recovered/Resolved]
  - Dysstasia [Not Recovered/Not Resolved]

NARRATIVE: CASE EVENT DATE: 20151008
